FAERS Safety Report 9048836 (Version 1)
Quarter: 2013Q1

REPORT INFORMATION
  Report Type: Spontaneous
  Country: US (occurrence: None)
  Receive Date: 20130116
  Receipt Date: 20130116
  Transmission Date: 20140127
  Serious: Yes (Death)
  Sender: FDA-Public Use
  Company Number: ANI_2013_1099447

PATIENT
  Age: 25 Year
  Sex: Male

DRUGS (5)
  1. METOCLOPRAMIDE [Suspect]
  2. METHYLENEDIOXYMETHAMPHETAMINE [Suspect]
  3. LYSERGIC ACID DIETHYLAMIDE [Suspect]
  4. CYCLOBENZAPRINE [Suspect]
  5. ACETAMINOPHEN/HYDROCODONE [Suspect]

REACTIONS (1)
  - Completed suicide [None]
